FAERS Safety Report 20930850 (Version 1)
Quarter: 2022Q2

REPORT INFORMATION
  Report Type: Spontaneous
  Country: AU (occurrence: AU)
  Receive Date: 20220608
  Receipt Date: 20220608
  Transmission Date: 20220721
  Serious: Yes (Hospitalization)
  Sender: FDA-Public Use
  Company Number: AU-BAYER-2022A076983

PATIENT
  Age: 67 Year
  Sex: Male

DRUGS (1)
  1. ADEMPAS [Suspect]
     Active Substance: RIOCIGUAT
     Dosage: 1 DF, TID
     Route: 048

REACTIONS (2)
  - Hypertension [Not Recovered/Not Resolved]
  - Gallbladder disorder [Not Recovered/Not Resolved]
